FAERS Safety Report 7395442-9 (Version None)
Quarter: 2011Q2

REPORT INFORMATION
  Report Type: 
  Country: None (occurrence: None)
  Receive Date: 20110405
  Receipt Date: 20110331
  Transmission Date: 20111010
  Serious: Yes (Life-Threatening, Hospitalization)
  Sender: FDA-Public Use
  Company Number: AU-PFIZER INC-2010003374

PATIENT
  Sex: Male
  Weight: 2.5 kg

DRUGS (6)
  1. HALOPERIDOL [Suspect]
     Dosage: 1 IN 1 DAY
     Route: 064
  2. ELEVIT PRONATAL [Concomitant]
     Indication: DRUG EXPOSURE DURING PREGNANCY
     Dosage: 1 IN 1 DAY
     Route: 064
  3. FOLIC ACID [Concomitant]
     Dosage: 5 MG, 1X/DAY
     Route: 064
  4. ZOLOFT [Suspect]
     Indication: DRUG EXPOSURE DURING PREGNANCY
     Dosage: 50 MG, 1X/DAY
     Route: 064
  5. EFFEXOR XR [Suspect]
     Dosage: 300 MG, 1X/DAY
     Route: 064
  6. QUETIAPINE [Suspect]
     Indication: DRUG EXPOSURE DURING PREGNANCY
     Dosage: 1 IN 1 DAY
     Route: 064

REACTIONS (6)
  - DRUG EXPOSURE DURING PREGNANCY [None]
  - PREMATURE BABY [None]
  - DRUG INTERACTION [None]
  - WITHDRAWAL SYNDROME [None]
  - RESPIRATORY DEPRESSION [None]
  - JAUNDICE [None]
